FAERS Safety Report 13525680 (Version 1)
Quarter: 2017Q2

REPORT INFORMATION
  Report Type: Spontaneous
  Country: AU (occurrence: AU)
  Receive Date: 20170508
  Receipt Date: 20170508
  Transmission Date: 20170830
  Serious: Yes (Other)
  Sender: FDA-Public Use
  Company Number: AU-ROCHE-1926195

PATIENT
  Age: 76 Year
  Sex: Male

DRUGS (2)
  1. ACTEMRA [Suspect]
     Active Substance: TOCILIZUMAB
     Indication: RHEUMATOID ARTHRITIS
     Route: 058
  2. ACTEMRA [Suspect]
     Active Substance: TOCILIZUMAB
     Indication: RHEUMATOID ARTHRITIS
     Route: 042

REACTIONS (7)
  - Blister [Unknown]
  - Fall [Unknown]
  - Impaired healing [Unknown]
  - Skin atrophy [Unknown]
  - Skin abrasion [Unknown]
  - Skin exfoliation [Unknown]
  - Skin fragility [Unknown]
